FAERS Safety Report 16745666 (Version 2)
Quarter: 2019Q3

REPORT INFORMATION
  Report Type: Spontaneous
  Country: GB (occurrence: GB)
  Receive Date: 20190827
  Receipt Date: 20190919
  Transmission Date: 20191005
  Serious: Yes (Disabling)
  Sender: FDA-Public Use
  Company Number: GB-PFIZER INC-2019363004

PATIENT
  Age: 19 Year
  Sex: Female
  Weight: 60 kg

DRUGS (3)
  1. GEDAREL [Concomitant]
     Dosage: UNK
  2. DEPO-PROVERA [Suspect]
     Active Substance: MEDROXYPROGESTERONE ACETATE
     Indication: CONTRACEPTION
     Dosage: 1 DF, UNK
     Route: 051
     Dates: start: 20180921, end: 20181221
  3. RIGEVIDON [ETHINYLESTRADIOL;NORGESTREL] [Suspect]
     Active Substance: ETHINYL ESTRADIOL\NORGESTREL
     Indication: CONTRACEPTION
     Dosage: UNK
     Route: 048
     Dates: start: 20181228, end: 20190125

REACTIONS (12)
  - Hypersomnia [Unknown]
  - Alopecia [Unknown]
  - Decreased appetite [Unknown]
  - Mood swings [Unknown]
  - Rash [Unknown]
  - Nervousness [Unknown]
  - Anxiety [Unknown]
  - Stress [Unknown]
  - Panic attack [Unknown]
  - Fatigue [Unknown]
  - Suicidal ideation [Recovered/Resolved]
  - Depression [Unknown]

NARRATIVE: CASE EVENT DATE: 20181015
